FAERS Safety Report 10091959 (Version 1)
Quarter: 2014Q2

REPORT INFORMATION
  Report Type: Spontaneous
  Country: US (occurrence: US)
  Receive Date: 20140421
  Receipt Date: 20140421
  Transmission Date: 20141212
  Serious: No
  Sender: FDA-Public Use
  Company Number: US-GILEAD-2013-0071048

PATIENT
  Sex: Female

DRUGS (3)
  1. LETAIRIS [Suspect]
     Indication: COR PULMONALE CHRONIC
     Dosage: 5 MG, QD
     Route: 048
     Dates: start: 20121018
  2. TYVASO [Concomitant]
  3. SILDENAFIL [Concomitant]

REACTIONS (3)
  - Cough [Unknown]
  - Diarrhoea [Unknown]
  - Headache [Unknown]
